FAERS Safety Report 15707783 (Version 1)
Quarter: 2018Q4

REPORT INFORMATION
  Report Type: Report from Study
  Country: CA (occurrence: CA)
  Receive Date: 20181211
  Receipt Date: 20181211
  Transmission Date: 20190205
  Serious: Yes (Death, Other)
  Sender: FDA-Public Use
  Company Number: CA-TEVA-2018-CA-985282

PATIENT
  Age: 49 Year
  Sex: Male

DRUGS (7)
  1. AFINITOR [Suspect]
     Active Substance: EVEROLIMUS
     Dosage: 10 MILLIGRAM DAILY;
     Route: 048
  2. SANDOSTATIN [Suspect]
     Active Substance: OCTREOTIDE ACETATE
     Route: 030
  3. OCTREOTIDE ACETATE. [Suspect]
     Active Substance: OCTREOTIDE ACETATE
     Indication: PRODUCT USED FOR UNKNOWN INDICATION
     Route: 065
  4. AFINITOR [Suspect]
     Active Substance: EVEROLIMUS
     Indication: NEUROENDOCRINE TUMOUR
     Dosage: 5 MILLIGRAM DAILY;
     Route: 048
  5. SANDOSTATIN [Suspect]
     Active Substance: OCTREOTIDE ACETATE
     Indication: NEUROENDOCRINE CARCINOMA
     Route: 030
  6. SANDOSTATIN [Suspect]
     Active Substance: OCTREOTIDE ACETATE
     Route: 030
  7. SANDOSTATIN [Suspect]
     Active Substance: OCTREOTIDE ACETATE
     Route: 030

REACTIONS (20)
  - Metastases to lung [Fatal]
  - Needle issue [Fatal]
  - Somnolence [Fatal]
  - Gait disturbance [Fatal]
  - Lower respiratory tract infection [Fatal]
  - Blood pressure diastolic increased [Fatal]
  - Lacrimation increased [Fatal]
  - Eyelid ptosis [Fatal]
  - Tooth abscess [Fatal]
  - Erythema [Fatal]
  - Toxicity to various agents [Fatal]
  - Fatigue [Fatal]
  - Malaise [Fatal]
  - Malignant neoplasm progression [Fatal]
  - Nasopharyngitis [Fatal]
  - Weight decreased [Fatal]
  - Ascites [Fatal]
  - Blood alkaline phosphatase increased [Fatal]
  - Death [Fatal]
  - Muscular weakness [Fatal]
